FAERS Safety Report 5081267-6 (Version None)
Quarter: 2006Q3

REPORT INFORMATION
  Report Type: 
  Country: None (occurrence: None)
  Receive Date: 20060816
  Receipt Date: 20060227
  Transmission Date: 20061208
  Serious: Yes (Life-Threatening, Hospitalization)
  Sender: FDA-Public Use
  Company Number: HQWYE048928FEB06

PATIENT
  Sex: Female
  Weight: 47 kg

DRUGS (17)
  1. ENBREL [Suspect]
     Indication: RHEUMATOID ARTHRITIS
     Route: 058
     Dates: start: 20050415, end: 20050728
  2. ENBREL [Suspect]
     Dates: start: 20050902
  3. ENBREL [Suspect]
     Dates: start: 20060110, end: 20060707
  4. PREDONINE [Suspect]
     Indication: RHEUMATOID ARTHRITIS
  5. ACTONEL [Concomitant]
  6. ISCOTIN [Concomitant]
  7. DOXAZOSIN MESYLATE [Concomitant]
  8. SINGULAIR [Concomitant]
  9. RISEDRONATE SODIUM [Concomitant]
  10. BLOPRESS [Concomitant]
  11. HYPEN [Concomitant]
  12. OMEPRAZON [Concomitant]
  13. BACTRIM [Concomitant]
  14. ASPARTATE CALCIUM [Concomitant]
  15. CARBAZOCHROME SODIUM SULFONATE [Concomitant]
  16. PROGRAF [Concomitant]
  17. CYCLOSPORINE [Concomitant]
     Indication: RHEUMATOID ARTHRITIS
     Route: 048
     Dates: start: 20041029

REACTIONS (4)
  - INFECTION [None]
  - LUMBAR SPINAL STENOSIS [None]
  - PULMONARY CONGESTION [None]
  - RENAL FAILURE ACUTE [None]
